FAERS Safety Report 16868280 (Version 1)
Quarter: 2019Q3

REPORT INFORMATION
  Report Type: Spontaneous
  Country: US (occurrence: US)
  Receive Date: 20190930
  Receipt Date: 20190930
  Transmission Date: 20191005
  Serious: Yes (Other)
  Sender: FDA-Public Use
  Company Number: US-PFIZER INC-2016478890

PATIENT
  Age: 71 Year
  Sex: Male

DRUGS (18)
  1. VIAGRA [Suspect]
     Active Substance: SILDENAFIL CITRATE
     Indication: ERECTILE DYSFUNCTION
     Dosage: 50 MG, AS NEEDED (1/2 TAB PRN)
     Route: 048
     Dates: start: 20160930
  2. VIAGRA [Suspect]
     Active Substance: SILDENAFIL CITRATE
     Dosage: 100 MG, AS NEEDED
  3. DUONEB [Concomitant]
     Active Substance: ALBUTEROL SULFATE\IPRATROPIUM BROMIDE
     Dosage: 3 ML, AS NEEDED TAKE 3 ML BY NEBULIZATION EVERY 4 (FOUR) HOURS, 0.5 MG-3MG;3 ML NEBULIZER
     Dates: start: 20160909
  4. DALIRESP [Concomitant]
     Active Substance: ROFLUMILAST
     Dosage: 500 UG, 1X/DAY
     Route: 048
     Dates: start: 20160510
  5. TIOTROPIUM [Concomitant]
     Active Substance: TIOTROPIUM
     Dosage: 1 DF, 1X/DAY [INHALE 1 CAPSULE VIA HAND INHALER ONCE DAILY AT THE SAME TIME EVERY DAY]
     Route: 055
     Dates: start: 20190919
  6. COREG [Concomitant]
     Active Substance: CARVEDILOL
     Dosage: 0.5 DF, 2X/DAY [TAKE 0.5 TABS BY MOUTH 2 (TWO) TIMES DAILY WITH MEALS]
     Route: 048
     Dates: start: 20160828
  7. KLOR-CON [Concomitant]
     Active Substance: POTASSIUM CHLORIDE
     Dosage: 10 MEQ, 2X/DAY
     Dates: start: 20160514
  8. COZAAR [Concomitant]
     Active Substance: LOSARTAN POTASSIUM
     Dosage: 25 MG, 2X/DAY
     Route: 048
  9. PROVENTIL [Concomitant]
     Active Substance: ALBUTEROL
     Indication: WHEEZING
     Dosage: 2 DF, AS NEEDED [90UG, INHALE 2 PUFFS AS DIRECTED EVERY 6 (SIX) HOURS]
     Route: 055
     Dates: start: 20140114
  10. ECOTRIN [Concomitant]
     Active Substance: ASPIRIN
     Dosage: 325 MG, 1X/DAY
     Route: 048
     Dates: start: 20160906
  11. NORCO [Concomitant]
     Active Substance: ACETAMINOPHEN\HYDROCODONE BITARTRATE
     Indication: PAIN
     Dosage: 1 DF, AS NEEDED [10-325MG TAKE 1 TABLET BY MOUTH EVERY 4 HOURS AS NEEDED]
     Route: 048
     Dates: start: 20160624
  12. PHENERGAN W/ CODEINE [Concomitant]
     Active Substance: CODEINE PHOSPHATE\PROMETHAZINE HYDROCHLORIDE
     Indication: COUGH
     Dosage: UNK, AS NEEDED [TAKE 5 ML BY MOUTH 4 (FOUR) TIMES DAILY, 6.25 -10 MG PER ML]
     Route: 048
     Dates: start: 20160828
  13. LASIX [Concomitant]
     Active Substance: FUROSEMIDE
     Dosage: 80 MG, 2X/DAY
     Route: 048
  14. PRILOSEC [Concomitant]
     Active Substance: OMEPRAZOLE MAGNESIUM
     Dosage: 20 MG, 2X/DAY
     Route: 048
  15. PRAVACHOL [Concomitant]
     Active Substance: PRAVASTATIN SODIUM
     Dosage: 20 MG, 1X/DAY [NIGHTLY]
     Route: 048
  16. EFFIENT [Concomitant]
     Active Substance: PRASUGREL HYDROCHLORIDE
     Dosage: 10 MG, 1X/DAY
     Dates: start: 20160706
  17. NORVASC [Concomitant]
     Active Substance: AMLODIPINE BESYLATE
     Dosage: 10 MG, 1X/DAY
     Route: 048
     Dates: start: 20130830
  18. ADVAIR HFA [Concomitant]
     Active Substance: FLUTICASONE PROPIONATE\SALMETEROL XINAFOATE
     Dosage: 1 DF, 2X/DAY [250-50MCG, INHALE 1 PUFF AS DIRECTED EVERY 12 (TWELVE) HOURS/250-50 MCG/DOSE INHALER]
     Route: 055

REACTIONS (1)
  - Lower limb fracture [Unknown]
